FAERS Safety Report 18778641 (Version 2)
Quarter: 2021Q1

REPORT INFORMATION
  Report Type: Spontaneous
  Country: DE (occurrence: DE)
  Receive Date: 20210124
  Receipt Date: 20210210
  Transmission Date: 20210419
  Serious: Yes (Other)
  Sender: FDA-Public Use
  Company Number: DE-SA-2021SA012596

PATIENT
  Age: 33 Year
  Sex: Female

DRUGS (7)
  1. RIFAMPICIN [Suspect]
     Active Substance: RIFAMPIN
     Dosage: NEW COURSE
  2. RIFAMPICIN [Suspect]
     Active Substance: RIFAMPIN
     Indication: LEPROMATOUS LEPROSY
     Dosage: UNK
  3. CLOFAZIMINE [Suspect]
     Active Substance: CLOFAZIMINE
     Dosage: NEW COURSE
  4. DAPSONE. [Suspect]
     Active Substance: DAPSONE
     Indication: LEPROMATOUS LEPROSY
     Dosage: UNK
  5. CLOFAZIMINE [Suspect]
     Active Substance: CLOFAZIMINE
     Indication: LEPROMATOUS LEPROSY
     Dosage: UNK
  6. DAPSONE. [Suspect]
     Active Substance: DAPSONE
     Dosage: NEW COURSE
  7. PREDNISOLONE. [Suspect]
     Active Substance: PREDNISOLONE
     Indication: TYPE 2 LEPRA REACTION
     Dosage: 50 MG, QD

REACTIONS (7)
  - Fatigue [Recovered/Resolved]
  - Madarosis [Recovered/Resolved]
  - Joint swelling [Recovered/Resolved]
  - Type 2 lepra reaction [Recovered/Resolved]
  - Arthralgia [Recovered/Resolved]
  - Exposure during pregnancy [Unknown]
  - Nodule [Recovered/Resolved]
